FAERS Safety Report 23064001 (Version 2)
Quarter: 2023Q4

REPORT INFORMATION
  Report Type: Report from Study
  Country: US (occurrence: None)
  Receive Date: 20231013
  Receipt Date: 20231027
  Transmission Date: 20240109
  Serious: Yes (Death, Other)
  Sender: FDA-Public Use
  Company Number: 2023A230708

PATIENT
  Age: 31251 Day
  Sex: Male

DRUGS (1)
  1. FARXIGA [Suspect]
     Active Substance: DAPAGLIFLOZIN PROPANEDIOL
     Route: 048

REACTIONS (20)
  - Death [Fatal]
  - Renal failure [Unknown]
  - Pulmonary oedema [Unknown]
  - Confusional state [Unknown]
  - Dehydration [Unknown]
  - Feeling cold [Unknown]
  - Hyperhidrosis [Unknown]
  - Somnolence [Unknown]
  - Irritability [Unknown]
  - Asthenia [Unknown]
  - Heart rate irregular [Unknown]
  - Dyspnoea [Unknown]
  - Fatigue [Unknown]
  - Gastrointestinal disorder [Unknown]
  - Vomiting [Unknown]
  - Dizziness [Unknown]
  - Nausea [Unknown]
  - Disorientation [Unknown]
  - Hypertension [Unknown]
  - Appetite disorder [Unknown]

NARRATIVE: CASE EVENT DATE: 20231004
